FAERS Safety Report 8036001-4 (Version None)
Quarter: 2012Q1

REPORT INFORMATION
  Report Type: 
  Country: None (occurrence: None)
  Receive Date: 20120111
  Receipt Date: 20120103
  Transmission Date: 20120608
  Serious: Yes (Hospitalization)
  Sender: FDA-Public Use
  Company Number: US-ASTELLAS-2011US000222

PATIENT

DRUGS (6)
  1. TACROLIMUS [Suspect]
     Indication: DERMATITIS ATOPIC
     Dosage: 0.03 %, WEEKLY
     Route: 061
     Dates: start: 20080416
  2. TRIAMCINOLONE [Concomitant]
     Indication: ECZEMA
     Dosage: 0.05 %, PRN
     Route: 061
  3. ZYRTEC [Concomitant]
     Indication: PRODUCT USED FOR UNKNOWN INDICATION
     Dosage: UNK
     Route: 065
  4. DESOWEN [Concomitant]
     Indication: ECZEMA
     Dosage: 1-2 TIMES DAILY, PRN
     Route: 061
  5. SINGULAIR [Concomitant]
     Indication: ASTHMA
     Dosage: 4 MG, UID/QD
     Route: 048
  6. ATARAX [Concomitant]
     Indication: PRURITUS
     Dosage: UNK
     Route: 048

REACTIONS (2)
  - TONSILLAR HYPERTROPHY [None]
  - SLEEP APNOEA SYNDROME [None]
